FAERS Safety Report 19126802 (Version 7)
Quarter: 2021Q3

REPORT INFORMATION
  Report Type: Report from Study
  Country: US (occurrence: US)
  Receive Date: 20210413
  Receipt Date: 20210826
  Transmission Date: 20211014
  Serious: No
  Sender: FDA-Public Use
  Company Number: NVSC2021US081815

PATIENT
  Sex: Female

DRUGS (1)
  1. PIQRAY [Suspect]
     Active Substance: ALPELISIB
     Indication: BREAST CANCER
     Dosage: 300 MG, QD
     Route: 048
     Dates: start: 20210319

REACTIONS (11)
  - Fatigue [Recovering/Resolving]
  - Glossodynia [Recovered/Resolved]
  - Oral pain [Unknown]
  - Weight decreased [Unknown]
  - Urine odour abnormal [Unknown]
  - Tongue discolouration [Unknown]
  - Hyperglycaemia [Unknown]
  - Alopecia [Unknown]
  - Diarrhoea [Unknown]
  - Dry mouth [Unknown]
  - Breath odour [Unknown]
